FAERS Safety Report 15402517 (Version 4)
Quarter: 2019Q1

REPORT INFORMATION
  Report Type: Report from Study
  Country: CO (occurrence: CO)
  Receive Date: 20180919
  Receipt Date: 20190210
  Transmission Date: 20190417
  Serious: Yes (Other)
  Sender: FDA-Public Use
  Company Number: PHHY2018CO096974

PATIENT
  Age: 56 Year
  Sex: Male
  Weight: 80 kg

DRUGS (2)
  1. COSENTYX [Suspect]
     Active Substance: SECUKINUMAB
     Dosage: 300 MG, QMO
     Route: 058
     Dates: end: 201812
  2. COSENTYX [Suspect]
     Active Substance: SECUKINUMAB
     Indication: PSORIASIS
     Dosage: 300 MG/2ML, QW
     Route: 058
     Dates: start: 20180808

REACTIONS (10)
  - Decreased immune responsiveness [Unknown]
  - Abscess [Recovering/Resolving]
  - Pain [Unknown]
  - Herpes zoster [Recovered/Resolved]
  - Dysphonia [Unknown]
  - Subcutaneous abscess [Recovered/Resolved]
  - Reflux gastritis [Unknown]
  - Post herpetic neuralgia [Unknown]
  - Subcutaneous abscess [Unknown]
  - Arthralgia [Unknown]

NARRATIVE: CASE EVENT DATE: 20180830
